FAERS Safety Report 8733587 (Version 2)
Quarter: 2012Q4

REPORT INFORMATION
  Report Type: 
  Country: US (occurrence: US)
  Receive Date: 20120821
  Receipt Date: 20121210
  Transmission Date: 20130627
  Serious: Yes (Death, Other)
  Sender: FDA-Public Use
  Company Number: US-PFIZER INC-2012200969

PATIENT
  Age: 53 Year
  Sex: Female

DRUGS (5)
  1. XALKORI [Suspect]
     Indication: LUNG CANCER
     Dosage: 250 mg, 2x/day
     Route: 048
     Dates: start: 20120123
  2. XALKORI [Suspect]
     Dosage: 250 mg, BID
     Route: 048
     Dates: start: 20120123, end: 20120724
  3. ACETYLSALICYLIC ACID [Concomitant]
     Dosage: 325 mg, 1x/day
     Route: 048
     Dates: end: 20120724
  4. CALCIUM WITH VITAMIN D [Concomitant]
     Indication: BONE DISORDER
     Dosage: 600/400 twice daily
     Route: 048
     Dates: end: 20120724
  5. VITAMIN C [Concomitant]
     Indication: PROPHYLAXIS
     Dosage: 500 mg, 1x/day
     Route: 048
     Dates: end: 20120724

REACTIONS (6)
  - Acute myocardial infarction [Fatal]
  - Pulmonary congestion [Unknown]
  - Pulmonary haemorrhage [Unknown]
  - Loss of consciousness [Unknown]
  - Nausea [Unknown]
  - Malaise [Unknown]
